FAERS Safety Report 10080983 (Version 1)
Quarter: 2014Q2

REPORT INFORMATION
  Report Type: Spontaneous
  Country: US (occurrence: US)
  Receive Date: 20140416
  Receipt Date: 20140416
  Transmission Date: 20141212
  Serious: No
  Sender: FDA-Public Use
  Company Number: US-B.I. PHARMACEUTICALS,INC./RIDGEFIELD-2014-BI-15505BP

PATIENT
  Age: 48 Year
  Sex: Male
  Weight: 59 kg

DRUGS (6)
  1. MICARDIS [Suspect]
     Indication: HYPERTENSION
     Dosage: 40 MG
     Route: 048
     Dates: start: 2012
  2. PRIOLOSEC [Concomitant]
     Indication: GASTRITIS
     Dosage: 20 MG
     Route: 048
  3. VITORN [Concomitant]
     Indication: BLOOD CHOLESTEROL INCREASED
     Dosage: DOSE PER APPLICATION AND DAILY DOSE: 10/20 MG
     Route: 048
  4. ZYPREXA [Concomitant]
     Indication: INSOMNIA
     Dosage: 10 MG
     Route: 048
  5. CLARITIN D [Concomitant]
     Indication: HYPERSENSITIVITY
     Route: 048
  6. SALINE SOLUTION NASAL SPRAY [Concomitant]
     Indication: NASAL CONGESTION
     Dosage: FORMULATION: NASAL SPRAY
     Route: 045

REACTIONS (7)
  - Heart rate increased [Recovered/Resolved]
  - Heart rate increased [Recovered/Resolved]
  - Bronchitis [Recovered/Resolved]
  - Limb injury [Not Recovered/Not Resolved]
  - Nightmare [Recovered/Resolved]
  - Nausea [Not Recovered/Not Resolved]
  - Rash [Recovered/Resolved]
